FAERS Safety Report 15200523 (Version 2)
Quarter: 2019Q3

REPORT INFORMATION
  Report Type: Other
  Country: DE (occurrence: DE)
  Receive Date: 20180726
  Receipt Date: 20190703
  Transmission Date: 20191004
  Serious: No
  Sender: FDA-Public Use
  Company Number: DE-LUPIN PHARMACEUTICALS INC.-2018-04361

PATIENT
  Sex: Female
  Weight: 86 kg

DRUGS (11)
  1. ATORVASTATIN [Suspect]
     Active Substance: ATORVASTATIN
     Indication: PERIPHERAL ARTERIAL OCCLUSIVE DISEASE
     Dosage: 10 MG, QD (10-20 MG)
     Route: 048
  2. SIMVASTATIN. [Suspect]
     Active Substance: SIMVASTATIN
     Indication: PERIPHERAL ARTERIAL OCCLUSIVE DISEASE
  3. ATORVASTATIN [Suspect]
     Active Substance: ATORVASTATIN
     Indication: CORONARY ARTERY DISEASE
  4. FLUVASTATIN [Suspect]
     Active Substance: FLUVASTATIN SODIUM
     Indication: CORONARY ARTERY DISEASE
  5. EZETROL [Concomitant]
     Active Substance: EZETIMIBE
     Indication: CORONARY ARTERY DISEASE
     Dosage: 10 MG, UNK
     Route: 048
  6. FLUVASTATIN [Suspect]
     Active Substance: FLUVASTATIN SODIUM
     Indication: PERIPHERAL ARTERIAL OCCLUSIVE DISEASE
  7. SIMVASTATIN. [Suspect]
     Active Substance: SIMVASTATIN
     Indication: CORONARY ARTERY DISEASE
  8. ATORVASTATIN [Suspect]
     Active Substance: ATORVASTATIN
     Indication: ARTERIAL OCCLUSIVE DISEASE
  9. SIMVASTATIN. [Suspect]
     Active Substance: SIMVASTATIN
     Indication: ARTERIAL OCCLUSIVE DISEASE
     Dosage: 10 MG, QD (20-40 MG)
     Route: 048
  10. FLUVASTATIN [Suspect]
     Active Substance: FLUVASTATIN SODIUM
     Indication: ARTERIAL OCCLUSIVE DISEASE
     Dosage: 10 MG, QD
     Route: 048
  11. CLOPIDOGREL [Concomitant]
     Active Substance: CLOPIDOGREL BISULFATE
     Indication: CORONARY ARTERY DISEASE
     Dosage: 75 MG, UNK
     Route: 048

REACTIONS (3)
  - Dermatitis allergic [Recovered/Resolved]
  - Muscle spasms [Recovered/Resolved]
  - Myopathy [Recovered/Resolved]
